FAERS Safety Report 8574839-5 (Version None)
Quarter: 2012Q2

REPORT INFORMATION
  Report Type: 
  Country: None (occurrence: None)
  Receive Date: 20120423
  Receipt Date: 20090820
  Transmission Date: 20120825
  Serious: Yes (Death, Other)
  Sender: FDA-Public Use
  Company Number: PHEH2009US08363

PATIENT
  Age: 68 Year
  Sex: Female

DRUGS (4)
  1. ANTIBIOTICS (NO INGREDIENTS/SUBSTANCES) [Concomitant]
  2. EXJADE [Suspect]
     Indication: MYELODYSPLASTIC SYNDROME
     Dosage: 500 MG BID OR TID, ORAL
     Route: 048
     Dates: start: 20080131, end: 20090601
  3. EXJADE [Suspect]
     Indication: TRANSFUSION
     Dosage: 500 MG BID OR TID, ORAL
     Route: 048
     Dates: start: 20080131, end: 20090601
  4. EXJADE [Suspect]
     Indication: IRON OVERLOAD
     Dosage: 500 MG BID OR TID, ORAL
     Route: 048
     Dates: start: 20080131, end: 20090601

REACTIONS (9)
  - PYREXIA [None]
  - ANAEMIA [None]
  - HAEMORRHAGE [None]
  - NEOPLASM MALIGNANT [None]
  - PANCYTOPENIA [None]
  - PLATELET COUNT DECREASED [None]
  - PAIN [None]
  - BONE MARROW FAILURE [None]
  - INFECTION [None]
